FAERS Safety Report 8453620-1 (Version None)
Quarter: 2012Q2

REPORT INFORMATION
  Report Type: 
  Country: None (occurrence: None)
  Receive Date: 20120620
  Receipt Date: 20120613
  Transmission Date: 20120825
  Serious: Yes (Hospitalization, Disabling)
  Sender: FDA-Public Use
  Company Number: US-MERCK-1111USA00631

PATIENT
  Age: 44 Year
  Sex: Female
  Weight: 65 kg

DRUGS (4)
  1. FOSAMAX [Suspect]
     Indication: OSTEOPOROSIS
     Route: 048
     Dates: start: 20020801, end: 20080801
  2. FOSAMAX [Suspect]
     Indication: OSTEOPENIA
     Route: 048
     Dates: start: 20020801, end: 20080801
  3. ALLEGRA [Concomitant]
     Route: 065
  4. XYZAL [Concomitant]
     Indication: RHINITIS
     Route: 065

REACTIONS (39)
  - DIVERTICULUM [None]
  - LOW TURNOVER OSTEOPATHY [None]
  - BREAST ADENOMA [None]
  - URTICARIA [None]
  - RASH [None]
  - PRURITUS [None]
  - POLYP [None]
  - LEUKOCYTOSIS [None]
  - FALL [None]
  - NODAL OSTEOARTHRITIS [None]
  - HYPERLIPIDAEMIA [None]
  - PARAESTHESIA [None]
  - INSOMNIA [None]
  - GAIT DISTURBANCE [None]
  - FEMUR FRACTURE [None]
  - CONJUNCTIVITIS ALLERGIC [None]
  - ABDOMINAL HERNIA [None]
  - PAIN IN EXTREMITY [None]
  - OEDEMA PERIPHERAL [None]
  - NORMOCHROMIC NORMOCYTIC ANAEMIA [None]
  - CONSTIPATION [None]
  - HYPOMAGNESAEMIA [None]
  - HIATUS HERNIA [None]
  - ALOPECIA [None]
  - NEPHROLITHIASIS [None]
  - HYPERTENSION [None]
  - FOLLICULITIS [None]
  - LIMB ASYMMETRY [None]
  - NODULE [None]
  - ACTIVITIES OF DAILY LIVING IMPAIRED [None]
  - ARTHRALGIA [None]
  - SYNOVIAL CYST [None]
  - HYPOPHOSPHATAEMIA [None]
  - MUSCULOSKELETAL PAIN [None]
  - CONTUSION [None]
  - FRACTURE NONUNION [None]
  - ANXIETY [None]
  - CARPAL TUNNEL SYNDROME [None]
  - OSTEOARTHRITIS [None]
